FAERS Safety Report 18747167 (Version 1)
Quarter: 2021Q1

REPORT INFORMATION
  Report Type: Spontaneous
  Country: US (occurrence: US)
  Receive Date: 20210115
  Receipt Date: 20210115
  Transmission Date: 20210419
  Serious: Yes (Hospitalization)
  Sender: FDA-Public Use
  Company Number: US-BAYER-2021-020277

PATIENT
  Age: 59 Year
  Sex: Female

DRUGS (1)
  1. PARACETAMOL [Suspect]
     Active Substance: ACETAMINOPHEN
     Dosage: UNK; TOTAL OF 56 G OVER ONE MONTH;

REACTIONS (2)
  - Delirium [Recovering/Resolving]
  - Metabolic acidosis [Recovering/Resolving]
